FAERS Safety Report 5376358-6 (Version None)
Quarter: 2007Q3

REPORT INFORMATION
  Report Type: 
  Country: None (occurrence: None)
  Receive Date: 20070702
  Receipt Date: 20070620
  Transmission Date: 20080115
  Serious: Yes (Other)
  Sender: FDA-Public Use
  Company Number: US-PFIZER INC-2007040739

PATIENT
  Sex: Female
  Weight: 61.4 kg

DRUGS (12)
  1. CHANTIX [Suspect]
     Indication: SMOKING CESSATION THERAPY
     Dates: start: 20070429, end: 20070602
  2. OXYMORPHONE [Suspect]
  3. LIPITOR [Concomitant]
  4. PREMARIN [Concomitant]
     Dosage: TEXT:0.625
  5. LEVOXYL [Concomitant]
     Dosage: TEXT:0.150
  6. NEXIUM [Concomitant]
  7. ATENOLOL [Concomitant]
  8. PREDNISONE TAB [Concomitant]
     Indication: RHEUMATOID ARTHRITIS
  9. VICODIN [Concomitant]
     Dosage: TEXT:5/500
  10. DURAGESIC-100 [Concomitant]
  11. ZOLOFT [Concomitant]
  12. LIDODERM [Concomitant]

REACTIONS (3)
  - DRUG INEFFECTIVE [None]
  - NAUSEA [None]
  - WEIGHT DECREASED [None]
